FAERS Safety Report 15066506 (Version 2)
Quarter: 2018Q4

REPORT INFORMATION
  Report Type: Spontaneous
  Country: US (occurrence: US)
  Receive Date: 20180626
  Receipt Date: 20181227
  Transmission Date: 20190204
  Serious: Yes (Death, Other)
  Sender: FDA-Public Use
  Company Number: US-SA-2018SA162791

PATIENT
  Age: 45 Year
  Sex: Male

DRUGS (5)
  1. AUBAGIO [Suspect]
     Active Substance: TERIFLUNOMIDE
     Indication: MULTIPLE SCLEROSIS
     Dosage: 14 MG, QD
     Route: 048
     Dates: start: 201707, end: 201808
  2. REBIF [Concomitant]
     Active Substance: INTERFERON BETA-1A
  3. GILENYA [Concomitant]
     Active Substance: FINGOLIMOD HYDROCHLORIDE
  4. AUBAGIO [Suspect]
     Active Substance: TERIFLUNOMIDE
     Indication: RELAPSING MULTIPLE SCLEROSIS
  5. COPAXONE [Concomitant]
     Active Substance: GLATIRAMER ACETATE

REACTIONS (5)
  - Asthenia [Recovered/Resolved]
  - Confusional state [Recovered/Resolved]
  - Progressive multiple sclerosis [Unknown]
  - Vision blurred [Recovered/Resolved]
  - Death [Fatal]

NARRATIVE: CASE EVENT DATE: 201808
